FAERS Safety Report 11751505 (Version 2)
Quarter: 2016Q1

REPORT INFORMATION
  Report Type: Report from Study
  Country: CA (occurrence: CA)
  Receive Date: 20151118
  Receipt Date: 20160217
  Transmission Date: 20160525
  Serious: Yes (Death, Other)
  Sender: FDA-Public Use
  Company Number: PHHY2015CA142763

PATIENT
  Age: 78 Year
  Sex: Male

DRUGS (4)
  1. TYLENOL [Suspect]
     Active Substance: ACETAMINOPHEN
     Indication: PRODUCT USED FOR UNKNOWN INDICATION
     Route: 065
  2. DILANTIN [Concomitant]
     Active Substance: PHENYTOIN
     Indication: SEIZURE
     Route: 065
  3. MEKINIST [Suspect]
     Active Substance: TRAMETINIB DIMETHYL SULFOXIDE
     Indication: METASTATIC MALIGNANT MELANOMA
     Dosage: 2 MG, QD (DAILY)
     Route: 048
     Dates: start: 20151028
  4. TAFINLAR [Suspect]
     Active Substance: DABRAFENIB MESYLATE
     Indication: METASTATIC MALIGNANT MELANOMA
     Dosage: 300 MG, QD (DAILY)
     Route: 048
     Dates: start: 20151028

REACTIONS (6)
  - Fatigue [Unknown]
  - Death [Fatal]
  - Dysphagia [Unknown]
  - Decreased appetite [Not Recovered/Not Resolved]
  - Abdominal discomfort [Unknown]
  - Constipation [Not Recovered/Not Resolved]

NARRATIVE: CASE EVENT DATE: 201601
